FAERS Safety Report 5152423-3 (Version None)
Quarter: 2006Q4

REPORT INFORMATION
  Report Type: 
  Country: None (occurrence: None)
  Receive Date: 20061116
  Receipt Date: 20060824
  Transmission Date: 20070319
  Serious: Yes (Death)
  Sender: FDA-Public Use
  Company Number: US-ELI_LILLY_AND_COMPANY-US200608005427

PATIENT
  Age: 37 Year
  Sex: Male
  Weight: 131.52 kg

DRUGS (2)
  1. ZYPREXA [Suspect]
     Dates: start: 19970101, end: 20040101
  2. CHLORPROMAZINE [Concomitant]
     Dates: start: 19970101, end: 19980101

REACTIONS (5)
  - DEATH [None]
  - DIABETES MELLITUS [None]
  - METABOLIC DISORDER [None]
  - OBESITY [None]
  - VISION BLURRED [None]
